FAERS Safety Report 24777893 (Version 3)
Quarter: 2025Q1

REPORT INFORMATION
  Report Type: Spontaneous
  Country: US (occurrence: US)
  Receive Date: 20241226
  Receipt Date: 20250109
  Transmission Date: 20250409
  Serious: No
  Sender: PFIZER
  Company Number: US-PFIZER INC-PV202400165231

PATIENT
  Age: 80 Year
  Sex: Female
  Weight: 68.98 kg

DRUGS (6)
  1. IBRANCE [Suspect]
     Active Substance: PALBOCICLIB
     Indication: Breast cancer female
     Route: 048
     Dates: start: 20241201
  2. IBRANCE [Suspect]
     Active Substance: PALBOCICLIB
     Indication: Pulmonary mass
  3. IBRANCE [Suspect]
     Active Substance: PALBOCICLIB
     Indication: Metastases to lung
  4. AROMASIN [Suspect]
     Active Substance: EXEMESTANE
     Indication: Breast cancer female
     Dates: start: 20241201
  5. AROMASIN [Suspect]
     Active Substance: EXEMESTANE
     Indication: Pulmonary mass
  6. AROMASIN [Suspect]
     Active Substance: EXEMESTANE
     Indication: Metastases to lung

REACTIONS (6)
  - Arthralgia [Unknown]
  - Muscle spasms [Unknown]
  - Gastrointestinal disorder [Unknown]
  - Dyspnoea [Unknown]
  - Back pain [Unknown]
  - Fatigue [Unknown]
